FAERS Safety Report 5660720-8 (Version None)
Quarter: 2008Q1

REPORT INFORMATION
  Report Type: 
  Country: None (occurrence: None)
  Receive Date: 20080311
  Receipt Date: 20080305
  Transmission Date: 20080703
  Serious: Yes (Other)
  Sender: FDA-Public Use
  Company Number: BR-ASTRAZENECA-2008UW02238

PATIENT
  Age: 32 Year
  Sex: Female
  Weight: 76 kg

DRUGS (5)
  1. ZOLADEX [Suspect]
     Indication: ENDOMETRIOSIS
     Route: 058
     Dates: start: 20070522, end: 20070522
  2. YASMIN [Concomitant]
     Indication: ORAL CONTRACEPTION
     Dates: end: 20030101
  3. GYNERA [Concomitant]
  4. FARLUTAL [Concomitant]
     Dates: start: 20080201
  5. CICLOPRINOGINA [Concomitant]
     Indication: MENSTRUAL CYCLE MANAGEMENT

REACTIONS (7)
  - AMENORRHOEA [None]
  - CERVICAL POLYP [None]
  - HEADACHE [None]
  - HOT FLUSH [None]
  - UTERINE LEIOMYOMA [None]
  - VULVOVAGINAL DRYNESS [None]
  - WEIGHT INCREASED [None]
